FAERS Safety Report 18330367 (Version 1)
Quarter: 2020Q3

REPORT INFORMATION
  Report Type: Spontaneous
  Country: FR (occurrence: FR)
  Receive Date: 20200930
  Receipt Date: 20200930
  Transmission Date: 20201103
  Serious: Yes (Other)
  Sender: FDA-Public Use
  Company Number: FR-MYLANLABS-2020M1081562

PATIENT
  Age: 51 Year
  Sex: Female
  Weight: 84 kg

DRUGS (8)
  1. PARACETAMOL [Concomitant]
     Active Substance: ACETAMINOPHEN
     Dosage: 3 GRAM, QD
     Route: 048
  2. ESOMEPRAZOLE. [Concomitant]
     Active Substance: ESOMEPRAZOLE MAGNESIUM
     Dosage: 80 MILLIGRAM, QD
     Route: 048
  3. ANORO [Concomitant]
     Active Substance: UMECLIDINIUM BROMIDE\VILANTEROL TRIFENATATE
     Dosage: 1 DOSAGE FORM, QD
     Route: 048
  4. QUETIAPINE. [Suspect]
     Active Substance: QUETIAPINE
     Indication: DEPRESSION
     Dosage: 100 MILLIGRAM, QD
     Route: 048
     Dates: start: 201801, end: 20200807
  5. ACIDE FOLIQUE [Concomitant]
     Active Substance: FOLIC ACID
     Dosage: 5 MILLIGRAM, QD
     Route: 048
  6. PAROXETINE. [Concomitant]
     Active Substance: PAROXETINE
     Dosage: 60 MILLIGRAM, QD
     Route: 048
  7. SERESTA [Concomitant]
     Active Substance: OXAZEPAM
     Dosage: 150 MILLIGRAM, QD
     Route: 048
  8. LEPTICUR [Concomitant]
     Active Substance: TROPATEPINE HYDROCHLORIDE
     Dosage: 20 MILLIGRAM, QD
     Route: 048

REACTIONS (1)
  - Anaemia [Not Recovered/Not Resolved]

NARRATIVE: CASE EVENT DATE: 20200725
